FAERS Safety Report 4374997-2 (Version None)
Quarter: 2004Q2

REPORT INFORMATION
  Report Type: 
  Country: None (occurrence: None)
  Receive Date: 20040604
  Receipt Date: 20040524
  Transmission Date: 20050107
  Serious: Yes (Hospitalization)
  Sender: FDA-Public Use
  Company Number: ITWYE779025MAY04

PATIENT
  Age: 14 Year
  Sex: Female

DRUGS (12)
  1. RAPAMUNE [Suspect]
     Indication: PROPHYLAXIS AGAINST TRANSPLANT REJECTION
     Dosage: 6 + 7 MG 1X PER 1 DAY ORAL
     Route: 048
     Dates: start: 20031116, end: 20040112
  2. RAPAMUNE [Suspect]
     Indication: PROPHYLAXIS AGAINST TRANSPLANT REJECTION
     Dosage: 6 + 7 MG 1X PER 1 DAY ORAL
     Route: 048
     Dates: start: 20040113
  3. CYCLOSPORINE [Concomitant]
  4. PREDNISONE TAB [Concomitant]
  5. LOSARTAN (LOSARTAN) [Concomitant]
  6. ATENOLOL [Concomitant]
  7. IRON (IRON) [Concomitant]
  8. FOLIC ACID [Concomitant]
  9. NYSTATIN [Concomitant]
  10. CALCITRIOL [Concomitant]
  11. SODIUM BICARBONATE IN PLASTIC CONTAINER [Concomitant]
  12. CALCIUM CARBONATE (CALCIUM CARBONATE) [Concomitant]

REACTIONS (6)
  - DISEASE PROGRESSION [None]
  - KIDNEY TRANSPLANT REJECTION [None]
  - PROTEINURIA [None]
  - RENAL IMPAIRMENT [None]
  - RENAL INTERSTITIAL FIBROSIS [None]
  - RENAL TUBULAR ATROPHY [None]
